FAERS Safety Report 4808997-2 (Version None)
Quarter: 2005Q4

REPORT INFORMATION
  Report Type: 
  Country: None (occurrence: None)
  Receive Date: 20051025
  Receipt Date: 20051013
  Transmission Date: 20060501
  Serious: Yes (Hospitalization, Other)
  Sender: FDA-Public Use
  Company Number: JP-BRISTOL-MYERS SQUIBB COMPANY-13142807

PATIENT
  Age: 57 Year
  Sex: Female

DRUGS (3)
  1. BLEOMYCIN [Suspect]
     Indication: OVARIAN GERM CELL ENDODERMAL SINUS TUMOUR STAGE I
     Route: 041
     Dates: start: 20050615, end: 20050615
  2. RANDA [Concomitant]
     Indication: OVARIAN GERM CELL ENDODERMAL SINUS TUMOUR STAGE I
     Route: 041
     Dates: start: 20050604, end: 20050604
  3. LASTET [Concomitant]
     Indication: OVARIAN GERM CELL ENDODERMAL SINUS TUMOUR STAGE I
     Route: 041
     Dates: start: 20050604, end: 20050604

REACTIONS (2)
  - INTERSTITIAL LUNG DISEASE [None]
  - INTESTINAL OBSTRUCTION [None]
